FAERS Safety Report 5848501-3 (Version None)
Quarter: 2008Q3

REPORT INFORMATION
  Report Type: 
  Country: None (occurrence: None)
  Receive Date: 20080815
  Receipt Date: 20080815
  Transmission Date: 20090109
  Serious: Yes (Hospitalization)
  Sender: FDA-Public Use
  Company Number: None

PATIENT
  Sex: Male
  Weight: 63.1 kg

DRUGS (1)
  1. PEG-INTRON [Suspect]
     Dosage: 1049 MCG

REACTIONS (4)
  - CONDITION AGGRAVATED [None]
  - MANIA [None]
  - SPEECH DISORDER [None]
  - VIOLENCE-RELATED SYMPTOM [None]
